FAERS Safety Report 4941214-1 (Version None)
Quarter: 2006Q1

REPORT INFORMATION
  Report Type: 
  Country: None (occurrence: None)
  Receive Date: 20060310
  Receipt Date: 20060310
  Transmission Date: 20060701
  Serious: Yes (Death, Hospitalization)
  Sender: FDA-Public Use
  Company Number: None

PATIENT
  Sex: Female
  Weight: 103 kg

DRUGS (2)
  1. CYCLOPHOSPHAMIDE [Suspect]
     Indication: BREAST CANCER
     Dosage: 1272 MG
     Dates: start: 20060222
  2. DOXORUBICIN HCL [Suspect]
     Dosage: 127 MG
     Dates: start: 20060222

REACTIONS (8)
  - CHILLS [None]
  - DIARRHOEA [None]
  - HYPOTENSION [None]
  - HYPOXIA [None]
  - NAUSEA [None]
  - SUDDEN DEATH [None]
  - TREMOR [None]
  - VOMITING [None]
